FAERS Safety Report 7018748-1 (Version None)
Quarter: 2010Q3

REPORT INFORMATION
  Report Type: 
  Country: None (occurrence: None)
  Receive Date: 20100928
  Receipt Date: 20100707
  Transmission Date: 20110219
  Serious: No
  Sender: FDA-Public Use
  Company Number: US-MYLANLABS-2010S1009139

PATIENT
  Age: 57 Year
  Sex: Female

DRUGS (16)
  1. CARBIDOPA AND LEVODOPA TABLETS USP [Suspect]
     Indication: PARKINSON'S DISEASE
     Route: 048
     Dates: start: 20100510, end: 20100518
  2. COMTAN [Concomitant]
     Indication: PARKINSON'S DISEASE
  3. REQUIP [Concomitant]
     Indication: PARKINSON'S DISEASE
  4. BACLOFEN [Concomitant]
  5. CLONAZEPAM [Concomitant]
  6. VITAMIN B-12 [Concomitant]
  7. ASPIRINA BAYER [Concomitant]
  8. OMEPRAZOLE [Concomitant]
  9. FISH OIL [Concomitant]
  10. SAM-E [Concomitant]
  11. MULTI-VITAMINS [Concomitant]
  12. FENTANYL CITRATE [Concomitant]
  13. CORRECTAL /00014501/ [Concomitant]
  14. STOOL SOFTENER [Concomitant]
  15. ASCORBIC ACID [Concomitant]
  16. CALCIUM [Concomitant]

REACTIONS (5)
  - ASTHENIA [None]
  - DRUG INEFFECTIVE [None]
  - FALL [None]
  - MUSCLE RIGIDITY [None]
  - PAIN [None]
